FAERS Safety Report 21686778 (Version 1)
Quarter: 2022Q4

REPORT INFORMATION
  Report Type: Spontaneous
  Country: US (occurrence: US)
  Receive Date: 20221206
  Receipt Date: 20221206
  Transmission Date: 20230112
  Serious: No
  Sender: FDA-Public Use
  Company Number: US-PADAGIS-2022PAD01006

PATIENT

DRUGS (2)
  1. CICLOPIROX [Suspect]
     Active Substance: CICLOPIROX
     Indication: Onychomycosis
     Dosage: ONCE A WEEK ON SUNDAY
     Route: 061
     Dates: start: 20221106
  2. NYSTATIN [Concomitant]
     Active Substance: NYSTATIN
     Indication: Onychomycosis
     Dosage: UNK
     Route: 065

REACTIONS (3)
  - Nail discolouration [Not Recovered/Not Resolved]
  - Drug ineffective [Unknown]
  - Product prescribing issue [Unknown]

NARRATIVE: CASE EVENT DATE: 20221106
